FAERS Safety Report 25766640 (Version 1)
Quarter: 2025Q3

REPORT INFORMATION
  Report Type: Spontaneous
  Country: US (occurrence: None)
  Receive Date: 20250903
  Receipt Date: 20250903
  Transmission Date: 20251020
  Serious: Yes (Death)
  Sender: FDA-CTU
  Company Number: None

PATIENT
  Age: 30 Year
  Sex: Female

DRUGS (1)
  1. HERBALS [Suspect]
     Active Substance: HERBALS

REACTIONS (2)
  - Toxicity to various agents [None]
  - Unresponsive to stimuli [None]
